FAERS Safety Report 6862347-9 (Version None)
Quarter: 2010Q3

REPORT INFORMATION
  Report Type: 
  Country: None (occurrence: None)
  Receive Date: 20100716
  Receipt Date: 20100609
  Transmission Date: 20110219
  Serious: Yes (Life-Threatening, Hospitalization, Other)
  Sender: FDA-Public Use
  Company Number: 2010-00687

PATIENT
  Age: 61 Year
  Sex: Female
  Weight: 50.7 kg

DRUGS (6)
  1. PRAVASTATIN SODIUM [Suspect]
     Indication: HYPERLIPIDAEMIA
     Dosage: 10 MG (2 IN 1 D), ORAL
     Route: 048
     Dates: start: 20100313, end: 20100506
  2. AMARYL [Suspect]
     Indication: DIABETES MELLITUS
     Dosage: 1 MG (1 IN 1 D), ORAL
     Route: 048
     Dates: start: 20100223, end: 20100605
  3. MEVALOTIN (UNKNOWN) [Concomitant]
  4. BASEN OD TABLET (UNKNOWN) [Concomitant]
  5. NORVASC (UNKNOWN) [Concomitant]
  6. CARDENALIN (UNKNOWN) [Concomitant]

REACTIONS (5)
  - BILE DUCT STENOSIS [None]
  - CHOLANGITIS [None]
  - HEPATIC FUNCTION ABNORMAL [None]
  - JAUNDICE CHOLESTATIC [None]
  - PANCREATIC CARCINOMA [None]
